FAERS Safety Report 23999569 (Version 2)
Quarter: 2024Q2

REPORT INFORMATION
  Report Type: Spontaneous
  Country: CA (occurrence: CA)
  Receive Date: 20240621
  Receipt Date: 20240625
  Transmission Date: 20240716
  Serious: Yes (Other)
  Sender: FDA-Public Use
  Company Number: CA-PFIZER INC-202400196899

PATIENT
  Age: 24 Year
  Sex: Male

DRUGS (2)
  1. ABRILADA [Suspect]
     Active Substance: ADALIMUMAB-AFZB
     Indication: Colitis ulcerative
     Dosage: 160 MG AT WEEK 0, 80 MG AT WEEK 2 THEN 40MG EVERY 2 WEEKS BEGINNING AT WEEK 4
     Route: 058
     Dates: start: 20240227
  2. ABRILADA [Suspect]
     Active Substance: ADALIMUMAB-AFZB
     Dosage: 160 MG AT WEEK 0, 80 MG AT WEEK 2 THEN 40MG EVERY 2 WEEKS BEGINNING AT WEEK 4
     Route: 058
     Dates: start: 2024

REACTIONS (1)
  - Anal abscess [Unknown]

NARRATIVE: CASE EVENT DATE: 20240501
